FAERS Safety Report 7949488 (Version 3)
Quarter: 2014Q3

REPORT INFORMATION
  Report Type: Spontaneous
  Country: DE (occurrence: DE)
  Receive Date: 20110518
  Receipt Date: 20140729
  Transmission Date: 20150326
  Serious: Yes (Hospitalization)
  Sender: FDA-Public Use
  Company Number: DE-RANBAXY-2011RR-44416

PATIENT
  Age: 50 Year
  Sex: Female
  Weight: 93 kg

DRUGS (6)
  1. FEMOSTON [Suspect]
     Active Substance: DYDROGESTERONE\ESTRADIOL
     Indication: MENOPAUSE
     Dosage: 1 DF, QD
     Route: 048
     Dates: start: 1999, end: 20110304
  2. IBUPROFEN. [Suspect]
     Active Substance: IBUPROFEN
     Indication: HEADACHE
     Dosage: 800 MG, BID
     Route: 048
     Dates: start: 2001, end: 20110304
  3. BELOC ZOK [Concomitant]
     Active Substance: METOPROLOL SUCCINATE
     Indication: HYPERTENSION
     Dosage: 95 MG, QD, 1-0-0
     Route: 048
     Dates: start: 2001
  4. CARBAMAZEPINE. [Suspect]
     Active Substance: CARBAMAZEPINE
     Indication: RESTLESS LEGS SYNDROME
     Dosage: 100 MG, QD
     Route: 048
     Dates: start: 201012, end: 20110228
  5. LISINOPRIL. [Suspect]
     Active Substance: LISINOPRIL
     Indication: HYPERTENSION
     Dosage: 5 MG, QD
     Route: 048
     Dates: start: 2006, end: 20110304
  6. T-LONG [Suspect]
     Active Substance: TRAMADOL
     Indication: BACK PAIN
     Dosage: 100 MG, QD
     Route: 048
     Dates: start: 2006, end: 20110304

REACTIONS (1)
  - Liver disorder [Recovering/Resolving]

NARRATIVE: CASE EVENT DATE: 201101
